FAERS Safety Report 9706552 (Version 1)
Quarter: 2013Q4

REPORT INFORMATION
  Report Type: Spontaneous
  Country: US (occurrence: US)
  Receive Date: 20131125
  Receipt Date: 20131125
  Transmission Date: 20140711
  Serious: Yes (Death)
  Sender: FDA-Public Use
  Company Number: US-ROCHE-1306197

PATIENT
  Sex: Male

DRUGS (2)
  1. KLONOPIN [Suspect]
     Indication: PANIC ATTACK
     Route: 065
  2. OXYGEN [Concomitant]
     Indication: DYSPNOEA

REACTIONS (3)
  - Cardiac arrest [Fatal]
  - Drug dependence [Unknown]
  - Muscular weakness [Unknown]
